FAERS Safety Report 8225591-4 (Version None)
Quarter: 2012Q1

REPORT INFORMATION
  Report Type: 
  Country: None (occurrence: None)
  Receive Date: 20120321
  Receipt Date: 20120314
  Transmission Date: 20120608
  Serious: Yes (Other)
  Sender: FDA-Public Use
  Company Number: AU-JNJFOC-20110705281

PATIENT
  Sex: Female
  Weight: 65 kg

DRUGS (5)
  1. REMICADE [Suspect]
     Indication: CROHN'S DISEASE
     Dosage: 9TH INFUSION
     Route: 042
     Dates: start: 20111209
  2. REMICADE [Suspect]
     Route: 042
     Dates: start: 20110624
  3. IMURAN [Concomitant]
  4. LEVOTHYROXINE SODIUM [Concomitant]
  5. REMICADE [Suspect]
     Route: 042
     Dates: start: 20101126

REACTIONS (4)
  - BASEDOW'S DISEASE [None]
  - MATERNAL EXPOSURE DURING PREGNANCY [None]
  - HYPOTHYROIDISM [None]
  - PREMATURE LABOUR [None]
